FAERS Safety Report 25034327 (Version 2)
Quarter: 2025Q2

REPORT INFORMATION
  Report Type: Spontaneous
  Country: US (occurrence: US)
  Receive Date: 20250304
  Receipt Date: 20250418
  Transmission Date: 20250716
  Serious: No
  Sender: ROCHE
  Company Number: US-ROCHE-10000216856

PATIENT
  Sex: Female
  Weight: 104.33 kg

DRUGS (2)
  1. XOLAIR [Suspect]
     Active Substance: OMALIZUMAB
     Indication: Urticaria
     Route: 058
     Dates: start: 202502
  2. XOLAIR [Suspect]
     Active Substance: OMALIZUMAB
     Indication: Urticaria chronic
     Route: 058

REACTIONS (6)
  - Product closure issue [Unknown]
  - Wrong technique in product usage process [Unknown]
  - Device defective [Unknown]
  - Product dose omission issue [Unknown]
  - Nasopharyngitis [Recovered/Resolved]
  - Ear infection [Recovered/Resolved]
